APPROVED DRUG PRODUCT: AMINOCAPROIC ACID
Active Ingredient: AMINOCAPROIC ACID
Strength: 1GM
Dosage Form/Route: TABLET;ORAL
Application: A212938 | Product #002 | TE Code: AB
Applicant: MSN LABORATORIES PRIVATE LTD
Approved: Sep 13, 2023 | RLD: No | RS: No | Type: RX